FAERS Safety Report 8324932-7 (Version None)
Quarter: 2012Q2

REPORT INFORMATION
  Report Type: 
  Country: None (occurrence: None)
  Receive Date: 20120501
  Receipt Date: 20120418
  Transmission Date: 20120825
  Serious: Yes (Life-Threatening)
  Sender: FDA-Public Use
  Company Number: JP-ASTELLAS-2012US004182

PATIENT
  Age: 65 Year
  Sex: Female

DRUGS (1)
  1. AMBISOME [Suspect]
     Indication: SYSTEMIC CANDIDA
     Dosage: 100 MG, UID/QD
     Route: 042
     Dates: start: 20120403, end: 20120416

REACTIONS (1)
  - CEREBRAL HAEMORRHAGE [None]
